FAERS Safety Report 8108989-4 (Version None)
Quarter: 2012Q1

REPORT INFORMATION
  Report Type: 
  Country: None (occurrence: None)
  Receive Date: 20120202
  Receipt Date: 20120105
  Transmission Date: 20120608
  Serious: No
  Sender: FDA-Public Use
  Company Number: US-AMGEN-USASP2012000760

PATIENT
  Age: 59 Year
  Sex: Female

DRUGS (1)
  1. ENBREL [Suspect]
     Indication: RHEUMATOID ARTHRITIS
     Dosage: 25 MG, 2 TIMES/WK
     Dates: start: 20030301, end: 20111201

REACTIONS (5)
  - ENDODONTIC PROCEDURE [None]
  - DENTAL CARIES [None]
  - RHEUMATOID ARTHRITIS [None]
  - ARTIFICIAL CROWN PROCEDURE [None]
  - TOOTH ABSCESS [None]
